FAERS Safety Report 8273160-2 (Version None)
Quarter: 2012Q2

REPORT INFORMATION
  Report Type: 
  Country: None (occurrence: None)
  Receive Date: 20120411
  Receipt Date: 20120404
  Transmission Date: 20120825
  Serious: Yes (Other)
  Sender: FDA-Public Use
  Company Number: US-BAYER-201015291NA

PATIENT
  Age: 31 Year
  Sex: Female
  Weight: 59.8 kg

DRUGS (42)
  1. OMNISCAN [Suspect]
     Indication: ANGIOGRAM
     Dosage: UNK
     Dates: start: 20030110, end: 20030110
  2. OMNISCAN [Suspect]
     Indication: NUCLEAR MAGNETIC RESONANCE IMAGING
     Dates: start: 20030922, end: 20030922
  3. MULTIHANCE [Suspect]
     Indication: NUCLEAR MAGNETIC RESONANCE IMAGING
  4. PROHANCE [Suspect]
     Indication: ANGIOGRAM
  5. DILANTIN [Concomitant]
     Indication: EPILEPSY
  6. AMLODIPINE [Concomitant]
  7. PREDNISONE [Concomitant]
  8. PLENDIL [Concomitant]
  9. OPTIMARK [Suspect]
     Indication: ANGIOGRAM
  10. ASPIRIN [Concomitant]
  11. CARDIZEM [Concomitant]
  12. LAMICTAL [Concomitant]
  13. VITAMIN K TAB [Concomitant]
  14. MAGNEVIST [Suspect]
     Indication: NUCLEAR MAGNETIC RESONANCE IMAGING
  15. OPTIMARK [Suspect]
     Indication: NUCLEAR MAGNETIC RESONANCE IMAGING BRAIN
  16. MULTIHANCE [Suspect]
     Indication: ANGIOGRAM
  17. PRAVASTATIN [Concomitant]
     Indication: BLOOD PRESSURE INCREASED
  18. METOPROLOL TARTRATE [Concomitant]
  19. LABETALOL HCL [Concomitant]
     Dosage: 400 MG TID
  20. METHADONE HCL [Concomitant]
     Indication: PAIN
  21. CLONIDINE [Concomitant]
  22. PROMETHAZINE [Concomitant]
  23. VICODIN [Concomitant]
  24. IBUPROFEN [Concomitant]
  25. RENAGEL [Concomitant]
  26. CARDURA [Concomitant]
  27. COUMADIN [Concomitant]
  28. ELAVIL [Concomitant]
     Indication: NEURALGIA
  29. ENOXAPARIN [Concomitant]
  30. LIDOCAINE [Concomitant]
  31. AMIODARONE HCL [Concomitant]
  32. OPTIMARK [Suspect]
     Indication: NUCLEAR MAGNETIC RESONANCE IMAGING
  33. NORVASC [Concomitant]
     Dosage: 10 MG BID
     Dates: start: 20031209
  34. DIAZEPAM [Concomitant]
  35. LOVENOX [Concomitant]
  36. MAGNEVIST [Suspect]
     Indication: ANGIOGRAM
     Dosage: UNK
     Dates: start: 20070118, end: 20070118
  37. PROHANCE [Suspect]
     Indication: NUCLEAR MAGNETIC RESONANCE IMAGING
  38. ACCUPRIL [Concomitant]
     Dosage: 40 MG BID
     Dates: start: 20031209
  39. PHENYTOIN [Concomitant]
  40. MORPHINE [Concomitant]
  41. HEPARIN [Concomitant]
  42. DEPAKOTE [Concomitant]

REACTIONS (25)
  - ARTHRALGIA [None]
  - JOINT CONTRACTURE [None]
  - EXFOLIATIVE RASH [None]
  - SKIN INDURATION [None]
  - PAIN [None]
  - MUSCULOSKELETAL STIFFNESS [None]
  - SKIN SWELLING [None]
  - DRY SKIN [None]
  - OEDEMA PERIPHERAL [None]
  - PRURITUS [None]
  - NEPHROGENIC SYSTEMIC FIBROSIS [None]
  - SKIN HYPERTROPHY [None]
  - SKIN TIGHTNESS [None]
  - STRESS [None]
  - ANXIETY [None]
  - MYALGIA [None]
  - ATROPHY [None]
  - JOINT RANGE OF MOTION DECREASED [None]
  - GAIT DISTURBANCE [None]
  - FINGER DEFORMITY [None]
  - SKIN BURNING SENSATION [None]
  - JOINT STIFFNESS [None]
  - PAIN IN EXTREMITY [None]
  - SKIN DISCOLOURATION [None]
  - MUSCULAR WEAKNESS [None]
